FAERS Safety Report 8188288-5 (Version None)
Quarter: 2012Q1

REPORT INFORMATION
  Report Type: 
  Country: None (occurrence: None)
  Receive Date: 20120306
  Receipt Date: 20120223
  Transmission Date: 20120608
  Serious: Yes (Hospitalization)
  Sender: FDA-Public Use
  Company Number: CA-ELI_LILLY_AND_COMPANY-CA201110000574

PATIENT
  Age: 60 Year
  Sex: Female
  Weight: 70.748 kg

DRUGS (1)
  1. FORTEO [Suspect]
     Indication: OSTEOPOROTIC FRACTURE
     Dosage: 20 UG, QD
     Route: 058
     Dates: start: 20110124

REACTIONS (4)
  - FRACTURE NONUNION [None]
  - RADIUS FRACTURE [None]
  - ULNA FRACTURE [None]
  - FALL [None]
